FAERS Safety Report 18217741 (Version 1)
Quarter: 2020Q3

REPORT INFORMATION
  Report Type: Spontaneous
  Country: US (occurrence: US)
  Receive Date: 20200831
  Receipt Date: 20200831
  Transmission Date: 20201103
  Serious: No
  Sender: FDA-Public Use
  Company Number: None

PATIENT
  Age: 59 Year
  Sex: Female
  Weight: 106.14 kg

DRUGS (2)
  1. OTEZLA [Suspect]
     Active Substance: APREMILAST
     Indication: PSORIASIS
     Dosage: ?          OTHER STRENGTH:60^S, 30MG;OTHER DOSE:TAKE 1 TABLET;?
     Route: 048
     Dates: start: 201901
  2. OTEZLA [Suspect]
     Active Substance: APREMILAST
     Indication: PSORIATIC ARTHROPATHY
     Dosage: ?          OTHER STRENGTH:60^S, 30MG;OTHER DOSE:TAKE 1 TABLET;?
     Route: 048
     Dates: start: 201901

REACTIONS (1)
  - Lymphadenopathy [None]
